FAERS Safety Report 18518442 (Version 1)
Quarter: 2020Q4

REPORT INFORMATION
  Report Type: Report from Study
  Country: US (occurrence: US)
  Receive Date: 20201118
  Receipt Date: 20201118
  Transmission Date: 20210114
  Serious: Yes (Hospitalization, Other)
  Sender: FDA-Public Use
  Company Number: US-TAKEDA-US201913304

PATIENT
  Age: 45 Year
  Sex: Female

DRUGS (13)
  1. TEDUGLUTIDE [Suspect]
     Active Substance: TEDUGLUTIDE
     Indication: SHORT-BOWEL SYNDROME
     Dosage: 2.84 GRAM, QD
     Route: 058
     Dates: start: 20180807
  2. TEDUGLUTIDE [Suspect]
     Active Substance: TEDUGLUTIDE
     Dosage: 2.84 MILLIGRAM, QD
     Route: 058
     Dates: start: 20181018
  3. TPN [AMINO ACIDS NOS;CARBOHYDRATES NOS;MINERALS NOS;VITAMINS NOS] [Concomitant]
     Active Substance: AMINO ACIDS\CARBOHYDRATES\MINERALS\VITAMINS
     Indication: PRODUCT USED FOR UNKNOWN INDICATION
  4. TEDUGLUTIDE [Suspect]
     Active Substance: TEDUGLUTIDE
     Indication: SHORT-BOWEL SYNDROME
     Dosage: 2.84 GRAM, QD
     Route: 058
     Dates: start: 20180807
  5. TEDUGLUTIDE [Suspect]
     Active Substance: TEDUGLUTIDE
     Dosage: 2.84 MILLIGRAM, QD
     Route: 058
     Dates: start: 20181018
  6. TEDUGLUTIDE [Suspect]
     Active Substance: TEDUGLUTIDE
     Indication: SHORT-BOWEL SYNDROME
     Dosage: 2.84 GRAM, QD
     Route: 058
     Dates: start: 20180807
  7. TEDUGLUTIDE [Suspect]
     Active Substance: TEDUGLUTIDE
     Dosage: 0.28 UNK, QD
     Route: 058
     Dates: start: 20181022
  8. TEDUGLUTIDE [Suspect]
     Active Substance: TEDUGLUTIDE
     Dosage: 0.28 UNK, QD
     Route: 058
     Dates: start: 20181022
  9. TEDUGLUTIDE [Suspect]
     Active Substance: TEDUGLUTIDE
     Dosage: 2.84 MILLIGRAM, QD
     Route: 058
     Dates: start: 20181018
  10. TEDUGLUTIDE [Suspect]
     Active Substance: TEDUGLUTIDE
     Dosage: 0.28 UNK, QD
     Route: 058
     Dates: start: 20181022
  11. TEDUGLUTIDE [Suspect]
     Active Substance: TEDUGLUTIDE
     Indication: SHORT-BOWEL SYNDROME
     Dosage: 2.84 GRAM, QD
     Route: 058
     Dates: start: 20180807
  12. TEDUGLUTIDE [Suspect]
     Active Substance: TEDUGLUTIDE
     Dosage: 2.84 MILLIGRAM, QD
     Route: 058
     Dates: start: 20181018
  13. TEDUGLUTIDE [Suspect]
     Active Substance: TEDUGLUTIDE
     Dosage: 0.28 UNK, QD
     Route: 058
     Dates: start: 20181022

REACTIONS (5)
  - Faeces hard [Not Recovered/Not Resolved]
  - Complication associated with device [Unknown]
  - Sepsis [Recovering/Resolving]
  - Dizziness postural [Unknown]
  - Weight decreased [Unknown]

NARRATIVE: CASE EVENT DATE: 20190412
